FAERS Safety Report 5067665-5 (Version None)
Quarter: 2006Q3

REPORT INFORMATION
  Report Type: 
  Country: None (occurrence: None)
  Receive Date: 20060727
  Receipt Date: 20060714
  Transmission Date: 20061208
  Serious: Yes (Hospitalization)
  Sender: FDA-Public Use
  Company Number: 2006PV017538

PATIENT
  Age: 81 Year
  Sex: Female
  Weight: 92.9874 kg

DRUGS (3)
  1. BYETTA [Suspect]
     Indication: DIABETES MELLITUS NON-INSULIN-DEPENDENT
     Dosage: 5 MCG;BID;SC
     Route: 058
     Dates: start: 20060713
  2. BYETTA [Suspect]
     Indication: DIABETES MELLITUS NON-INSULIN-DEPENDENT
     Dosage: 5 MCG;BID;SC
     Route: 058
     Dates: start: 20060624, end: 20060709
  3. INSULIN 50/50 [Concomitant]

REACTIONS (10)
  - ARTHRALGIA [None]
  - CHEST PAIN [None]
  - DIZZINESS [None]
  - DRUG EFFECT DECREASED [None]
  - HEADACHE [None]
  - HEART RATE INCREASED [None]
  - MUSCULOSKELETAL PAIN [None]
  - NECK PAIN [None]
  - VOMITING [None]
  - WEIGHT DECREASED [None]
